FAERS Safety Report 13246959 (Version 1)
Quarter: 2017Q1

REPORT INFORMATION
  Report Type: Spontaneous
  Country: US (occurrence: US)
  Receive Date: 20170217
  Receipt Date: 20170217
  Transmission Date: 20170428
  Serious: No
  Sender: FDA-Public Use
  Company Number: US-NOVAST LABORATORIES, LTD-US-2016NOV000035

PATIENT

DRUGS (1)
  1. DASETTA 7/7/7 [Suspect]
     Active Substance: ETHINYL ESTRADIOL\NORETHINDRONE
     Indication: PRODUCT USED FOR UNKNOWN INDICATION
     Dosage: UNK

REACTIONS (2)
  - Drug dose omission [Unknown]
  - Unevaluable event [Unknown]

NARRATIVE: CASE EVENT DATE: 20160822
